FAERS Safety Report 8774789 (Version 2)
Quarter: 2012Q4

REPORT INFORMATION
  Report Type: 
  Country: US (occurrence: US)
  Receive Date: 20120910
  Receipt Date: 20120920
  Transmission Date: 20130627
  Serious: No
  Sender: FDA-Public Use
  Company Number: US-PFIZER INC-2012218748

PATIENT
  Age: 79 Year
  Sex: Male

DRUGS (3)
  1. TOVIAZ [Suspect]
     Indication: NOCTURIA
     Dosage: 4 mg, 1x/day
  2. TOVIAZ [Suspect]
     Indication: HYPERTONIC BLADDER
     Dosage: 4 mg, 1x/day
     Route: 048
     Dates: start: 2012
  3. TOVIAZ [Suspect]
     Dosage: UNK
     Route: 048

REACTIONS (1)
  - Drug effect decreased [Unknown]
